FAERS Safety Report 8372652-5 (Version None)
Quarter: 2012Q2

REPORT INFORMATION
  Report Type: 
  Country: None (occurrence: None)
  Receive Date: 20120521
  Receipt Date: 20120516
  Transmission Date: 20120825
  Serious: Yes (Other)
  Sender: FDA-Public Use
  Company Number: PHEH2012US008395

PATIENT
  Age: 59 Year
  Sex: Male
  Weight: 107.25 kg

DRUGS (2)
  1. ZOMETA [Suspect]
     Indication: PROSTATE CANCER
     Dosage: UNK
     Route: 042
     Dates: start: 20110808
  2. LUPRON [Concomitant]
     Indication: PROSTATE CANCER

REACTIONS (1)
  - GINGIVAL RECESSION [None]
